FAERS Safety Report 22896539 (Version 3)
Quarter: 2023Q4

REPORT INFORMATION
  Report Type: Spontaneous
  Country: AR (occurrence: AR)
  Receive Date: 20230901
  Receipt Date: 20231002
  Transmission Date: 20240110
  Serious: Yes (Other)
  Sender: FDA-Public Use
  Company Number: AR-PFIZER INC-PV202300143837

PATIENT
  Age: 57 Year
  Sex: Female

DRUGS (1)
  1. IXIFI [Suspect]
     Active Substance: INFLIXIMAB-QBTX
     Dosage: UNK

REACTIONS (4)
  - Hepatomegaly [Unknown]
  - Liver disorder [Unknown]
  - Splenomegaly [Unknown]
  - Influenza [Recovered/Resolved]
